FAERS Safety Report 12688066 (Version 1)
Quarter: 2016Q3

REPORT INFORMATION
  Report Type: Spontaneous
  Country: US (occurrence: US)
  Receive Date: 20160825
  Receipt Date: 20160825
  Transmission Date: 20161109
  Serious: No
  Sender: FDA-Public Use
  Company Number: US-BAYER-2016-160982

PATIENT
  Age: 79 Year
  Sex: Female

DRUGS (1)
  1. CLIMARA PRO [Suspect]
     Active Substance: ESTRADIOL\LEVONORGESTREL
     Indication: MENOPAUSAL SYMPTOMS
     Dosage: UNK
     Route: 062
     Dates: start: 2016

REACTIONS (3)
  - Hot flush [Not Recovered/Not Resolved]
  - Patient dissatisfaction with treatment [None]
  - Product adhesion issue [None]

NARRATIVE: CASE EVENT DATE: 201606
